FAERS Safety Report 17465182 (Version 1)
Quarter: 2020Q1

REPORT INFORMATION
  Report Type: Spontaneous
  Country: US (occurrence: US)
  Receive Date: 20200227
  Receipt Date: 20200227
  Transmission Date: 20200409
  Serious: Yes (Hospitalization)
  Sender: FDA-Public Use
  Company Number: US-ALEMBIC PHARMACUETICALS LIMITED-2020SCAL000079

PATIENT

DRUGS (1)
  1. FAMOTIDINE. [Suspect]
     Active Substance: FAMOTIDINE
     Indication: GASTROOESOPHAGEAL REFLUX DISEASE
     Dosage: 20 MILLIGRAM, BID

REACTIONS (10)
  - Muscle spasms [Unknown]
  - Chvostek^s sign [Unknown]
  - Fall [Unknown]
  - Lethargy [Unknown]
  - Hypomagnesaemia [Recovered/Resolved]
  - Confusional state [Unknown]
  - Hypoparathyroidism [Unknown]
  - Dry skin [Unknown]
  - Hypocalcaemia [Recovered/Resolved]
  - Trousseau^s sign [Unknown]
